FAERS Safety Report 6756346-5 (Version None)
Quarter: 2010Q2

REPORT INFORMATION
  Report Type: 
  Country: None (occurrence: None)
  Receive Date: 20100604
  Receipt Date: 20100601
  Transmission Date: 20101027
  Serious: Yes (Life-Threatening)
  Sender: FDA-Public Use
  Company Number: JP-BAYER-201011968BYL

PATIENT
  Age: 62 Year
  Sex: Male
  Weight: 81 kg

DRUGS (6)
  1. NEXAVAR [Suspect]
     Indication: HEPATIC NEOPLASM MALIGNANT
     Dosage: TOTAL DAILY DOSE: 800 MG  UNIT DOSE: 200 MG
     Route: 048
     Dates: start: 20100402, end: 20100414
  2. LIVACT [Concomitant]
     Indication: HYPOALBUMINAEMIA
     Dosage: UNIT DOSE: 4.15 G
     Route: 048
     Dates: start: 20070801
  3. URSO 250 [Concomitant]
     Indication: HEPATITIS C
     Dosage: UNIT DOSE: 100 MG
     Route: 048
  4. LASIX [Concomitant]
     Indication: OEDEMA DUE TO HEPATIC DISEASE
     Dosage: UNIT DOSE: 20 MG
     Route: 048
  5. ALDACTONE [Concomitant]
     Indication: OEDEMA DUE TO HEPATIC DISEASE
     Dosage: UNIT DOSE: 25 MG
     Route: 048
  6. NORVASC [Concomitant]
     Indication: HYPERTENSION
     Dosage: UNIT DOSE: 2.5 MG
     Route: 048

REACTIONS (3)
  - GASTROINTESTINAL HAEMORRHAGE [None]
  - HEPATIC ENCEPHALOPATHY [None]
  - LIVER DISORDER [None]
